FAERS Safety Report 10743247 (Version 2)
Quarter: 2015Q1

REPORT INFORMATION
  Report Type: Spontaneous
  Country: US (occurrence: US)
  Receive Date: 20150127
  Receipt Date: 20150316
  Transmission Date: 20150721
  Serious: No
  Sender: FDA-Public Use
  Company Number: US-PFIZER INC-2015027616

PATIENT
  Age: 59 Year
  Sex: Female
  Weight: 68 kg

DRUGS (14)
  1. SEROQUEL [Concomitant]
     Active Substance: QUETIAPINE FUMARATE
     Indication: BACK PAIN
     Dosage: 100 MG ONE AT BEDTIME
     Route: 048
     Dates: end: 20150112
  2. SEROQUEL [Concomitant]
     Active Substance: QUETIAPINE FUMARATE
     Indication: DEPRESSION
  3. TEMAZEPAM. [Concomitant]
     Active Substance: TEMAZEPAM
     Indication: SLEEP DISORDER
     Dosage: ONE TO TWO CAPSULES (30-60 MG), 1X/DAY (EVERY NIGHT)
     Route: 048
  4. CYMBALTA [Concomitant]
     Active Substance: DULOXETINE HYDROCHLORIDE
     Indication: DEPRESSION
  5. FLEXERIL [Suspect]
     Active Substance: CYCLOBENZAPRINE HYDROCHLORIDE
     Dosage: UNK
  6. TRAMADOL [Concomitant]
     Active Substance: TRAMADOL
     Indication: PAIN
     Dosage: ONE TO TWO TABLETS (50-100 MG), 3X/DAY, AS NEEDED
     Route: 048
  7. LYRICA [Suspect]
     Active Substance: PREGABALIN
     Indication: BACK PAIN
  8. TOPAMAX [Concomitant]
     Active Substance: TOPIRAMATE
     Indication: MIGRAINE
     Dosage: 100 MG TABLET AT ONE TABLET DAILY
     Route: 048
  9. CYMBALTA [Concomitant]
     Active Substance: DULOXETINE HYDROCHLORIDE
     Indication: BACK PAIN
     Dosage: 30 MG AT ONE CAPSULE DAILY
  10. LYRICA [Suspect]
     Active Substance: PREGABALIN
     Indication: FIBROMYALGIA
     Dosage: 75 MG, 2X/DAY
     Route: 048
     Dates: start: 20140603, end: 20141001
  11. BABY ASPIRIN [Concomitant]
     Active Substance: ASPIRIN
     Indication: CARDIAC DISORDER
     Dosage: 81 MG TABLET AT ONE TABLET AT BEDTIME
     Route: 048
  12. CYCLOBENZAPRINE [Concomitant]
     Active Substance: CYCLOBENZAPRINE
     Indication: MUSCLE RELAXANT THERAPY
     Dosage: 10 MG TABLET AT ONE TABLET 3 TIMES A DAY
     Route: 048
  13. IBUPROFEN. [Concomitant]
     Active Substance: IBUPROFEN
     Indication: PAIN
     Dosage: 0.5 DF (400 MG), AS NEEDED
     Route: 048
  14. XANAX [Suspect]
     Active Substance: ALPRAZOLAM
     Dosage: UNK

REACTIONS (8)
  - Post-traumatic neck syndrome [Unknown]
  - Mobility decreased [Unknown]
  - Somnolence [Unknown]
  - Back disorder [Unknown]
  - Insomnia [Unknown]
  - Back pain [Unknown]
  - Vision blurred [Unknown]
  - Road traffic accident [Unknown]

NARRATIVE: CASE EVENT DATE: 2014
